FAERS Safety Report 18388545 (Version 1)
Quarter: 2020Q4

REPORT INFORMATION
  Report Type: Spontaneous
  Country: US (occurrence: US)
  Receive Date: 20201015
  Receipt Date: 20201015
  Transmission Date: 20210114
  Serious: No
  Sender: FDA-Public Use
  Company Number: US-GLAXOSMITHKLINE-US2020202014

PATIENT
  Sex: Female

DRUGS (1)
  1. TRANSDERM SCOP [Suspect]
     Active Substance: SCOPOLAMINE
     Indication: DROOLING
     Dosage: 1.5 MG
     Route: 062

REACTIONS (3)
  - Product use in unapproved indication [Unknown]
  - Application site rash [Unknown]
  - Application site pruritus [Unknown]
